FAERS Safety Report 4428942-1 (Version None)
Quarter: 2004Q3

REPORT INFORMATION
  Report Type: 
  Country: None (occurrence: None)
  Receive Date: 20040818
  Receipt Date: 20031223
  Transmission Date: 20050211
  Serious: No
  Sender: FDA-Public Use
  Company Number: US-GLAXOSMITHKLINE-A0494050A

PATIENT
  Age: 51 Year
  Sex: Female
  Weight: 90.9 kg

DRUGS (6)
  1. LOTRONEX [Suspect]
     Indication: IRRITABLE BOWEL SYNDROME
     Dosage: 1MG TWICE PER DAY
     Route: 048
     Dates: start: 20000619
  2. ELAVIL [Concomitant]
  3. CALTRATE [Concomitant]
  4. PENICILLIN [Concomitant]
  5. ZANTAC [Concomitant]
  6. CARAFATE [Concomitant]

REACTIONS (1)
  - CONSTIPATION [None]
